FAERS Safety Report 14319023 (Version 2)
Quarter: 2018Q1

REPORT INFORMATION
  Report Type: Report from Study
  Country: US (occurrence: US)
  Receive Date: 20171222
  Receipt Date: 20180123
  Transmission Date: 20180509
  Serious: Yes (Hospitalization, Other)
  Sender: FDA-Public Use
  Company Number: US-ACTELION-A-NJ2017-157128

PATIENT
  Age: 56 Year
  Sex: Female

DRUGS (1)
  1. OPSUMIT [Suspect]
     Active Substance: MACITENTAN
     Indication: PULMONARY ARTERIAL HYPERTENSION
     Dosage: 10 MG, QD
     Route: 048
     Dates: start: 20170627, end: 20171216

REACTIONS (10)
  - Weight decreased [Unknown]
  - Tetanus [Unknown]
  - Anaemia [Unknown]
  - Malaise [Unknown]
  - Drug administration error [Recovered/Resolved]
  - Condition aggravated [Unknown]
  - Gastrointestinal haemorrhage [Unknown]
  - Blood iron decreased [Unknown]
  - Asthenia [Recovered/Resolved]
  - Nasopharyngitis [Unknown]
